FAERS Safety Report 9053742 (Version 1)
Quarter: 2013Q1

REPORT INFORMATION
  Report Type: Spontaneous
  Country: US (occurrence: None)
  Receive Date: 20130201
  Receipt Date: 20130201
  Transmission Date: 20140127
  Serious: Yes (Hospitalization)
  Sender: FDA-Public Use
  Company Number: None

PATIENT
  Age: 55 Year
  Sex: Female
  Weight: 49.9 kg

DRUGS (3)
  1. NUCYNTA [Suspect]
     Indication: PAIN
     Route: 048
     Dates: start: 20121211, end: 20121221
  2. NUCYNTA [Suspect]
     Indication: SCOLIOSIS
     Route: 048
     Dates: start: 20121211, end: 20121221
  3. NUCYNTA [Suspect]
     Route: 048
     Dates: start: 20121221, end: 20130104

REACTIONS (3)
  - Restlessness [None]
  - Acute psychosis [None]
  - Incoherent [None]
